FAERS Safety Report 6701268-9 (Version None)
Quarter: 2010Q2

REPORT INFORMATION
  Report Type: 
  Country: None (occurrence: None)
  Receive Date: 20100428
  Receipt Date: 20100420
  Transmission Date: 20101027
  Serious: Yes (Death)
  Sender: FDA-Public Use
  Company Number: US-BRISTOL-MYERS SQUIBB COMPANY-15070725

PATIENT

DRUGS (2)
  1. ONGLYZA [Suspect]
     Indication: DIABETES MELLITUS
  2. METFORMIN HCL [Suspect]
     Indication: DIABETES MELLITUS

REACTIONS (1)
  - DEATH [None]
